FAERS Safety Report 15738926 (Version 1)
Quarter: 2018Q4

REPORT INFORMATION
  Report Type: Spontaneous
  Country: US (occurrence: US)
  Receive Date: 20181204
  Receipt Date: 20181204
  Transmission Date: 20190205
  Serious: No
  Sender: FDA-Public Use
  Company Number: None

PATIENT
  Age: 65 Year

DRUGS (1)
  1. SILIQ [Suspect]
     Active Substance: BRODALUMAB
     Route: 058
     Dates: start: 201811, end: 201812

REACTIONS (2)
  - Upper respiratory tract infection [None]
  - Product dose omission [None]

NARRATIVE: CASE EVENT DATE: 20181130
